FAERS Safety Report 7083625-7 (Version None)
Quarter: 2010Q4

REPORT INFORMATION
  Report Type: 
  Country: None (occurrence: None)
  Receive Date: 20101104
  Receipt Date: 20101028
  Transmission Date: 20110411
  Serious: Yes (Hospitalization, Other)
  Sender: FDA-Public Use
  Company Number: CHPA2010US16933

PATIENT
  Age: 49 Year
  Sex: Female
  Weight: 81.633 kg

DRUGS (2)
  1. PRIVATE LABEL (NCH) [Suspect]
     Indication: SMOKING CESSATION THERAPY
     Dosage: 21 MG, QD
     Route: 062
     Dates: start: 20101022, end: 20101027
  2. PRIVATE LABEL (NCH) [Suspect]
     Dosage: 21 MG, QD
     Route: 062
     Dates: start: 20100301, end: 20100301

REACTIONS (5)
  - CHEST DISCOMFORT [None]
  - EPISTAXIS [None]
  - HAEMATEMESIS [None]
  - OVERDOSE [None]
  - TREATMENT NONCOMPLIANCE [None]
